FAERS Safety Report 9476187 (Version 1)
Quarter: 2013Q3

REPORT INFORMATION
  Report Type: Spontaneous
  Country: US (occurrence: None)
  Receive Date: 20130823
  Receipt Date: 20130823
  Transmission Date: 20140515
  Serious: Yes (Life-Threatening, Hospitalization, Disabling, Other)
  Sender: FDA-Public Use
  Company Number: None

PATIENT
  Sex: Female
  Weight: 58.97 kg

DRUGS (2)
  1. CARBIOPA/LEVODOPA [Suspect]
     Indication: SCHIZOPHRENIA
  2. ENALAPRIL MALEATE [Suspect]

REACTIONS (2)
  - Fall [None]
  - Eye swelling [None]
